FAERS Safety Report 20317287 (Version 1)
Quarter: 2022Q1

REPORT INFORMATION
  Report Type: Spontaneous
  Country: US (occurrence: US)
  Receive Date: 20220110
  Receipt Date: 20220110
  Transmission Date: 20220423
  Serious: Yes (Death, Life-Threatening, Hospitalization, Other)
  Sender: FDA-Public Use
  Company Number: US-BAYER-2022A002331

PATIENT
  Age: 31 Year
  Sex: Male

DRUGS (6)
  1. ASPIRIN [Suspect]
     Active Substance: ASPIRIN
     Indication: Antiplatelet therapy
  2. WARFARIN [Suspect]
     Active Substance: WARFARIN
     Indication: Anticoagulant therapy
  3. VANCOMYCIN [Concomitant]
     Active Substance: VANCOMYCIN
  4. MICAFUNGIN [Concomitant]
     Active Substance: MICAFUNGIN
  5. PIPERACILLIN [Concomitant]
     Active Substance: PIPERACILLIN
  6. TAZOBACTAM [Concomitant]
     Active Substance: TAZOBACTAM

REACTIONS (6)
  - Cerebral haematoma [Fatal]
  - Hydrocephalus [None]
  - Cerebral mass effect [None]
  - Cerebral haemorrhage [None]
  - Subarachnoid haemorrhage [None]
  - Mesenteric haematoma [None]
